FAERS Safety Report 5225270-1 (Version None)
Quarter: 2007Q1

REPORT INFORMATION
  Report Type: 
  Country: None (occurrence: None)
  Receive Date: 20070131
  Receipt Date: 20070118
  Transmission Date: 20070707
  Serious: Yes (Other)
  Sender: FDA-Public Use
  Company Number: PHBS2007CH01261

PATIENT
  Age: 76 Year
  Sex: Male

DRUGS (2)
  1. STALEVO 100 [Suspect]
     Indication: PARKINSONISM
     Dosage: 50 MG, TID
  2. KLACID /SCH/ [Suspect]
     Indication: INFECTION
     Dosage: 250 MG, BID

REACTIONS (6)
  - ABNORMAL BEHAVIOUR [None]
  - AGGRESSION [None]
  - DELIRIUM [None]
  - DISSOCIATIVE FUGUE [None]
  - DRUG INTERACTION [None]
  - INFECTION [None]
